FAERS Safety Report 4897748-1 (Version None)
Quarter: 2006Q1

REPORT INFORMATION
  Report Type: 
  Country: None (occurrence: None)
  Receive Date: 20060130
  Receipt Date: 20060130
  Transmission Date: 20060701
  Serious: Yes (Other)
  Sender: FDA-Public Use
  Company Number: None

PATIENT
  Age: 71 Year
  Sex: Male
  Weight: 106.5953 kg

DRUGS (1)
  1. PRANDIN [Suspect]
     Indication: DIABETES MELLITUS
     Dosage: 2 PILLS 2 X PER DAY PO
     Route: 048
     Dates: start: 20040101, end: 20040108

REACTIONS (2)
  - CONVULSION [None]
  - SPEECH DISORDER [None]
